FAERS Safety Report 5160492-X (Version None)
Quarter: 2006Q4

REPORT INFORMATION
  Report Type: 
  Country: None (occurrence: None)
  Receive Date: 20061129
  Receipt Date: 20061121
  Transmission Date: 20070319
  Serious: Yes (Disabling)
  Sender: FDA-Public Use
  Company Number: GB-BOEHRINGER INGELHEIM PHARMACEUTICALS, INC.-2006-DE-06186GD

PATIENT
  Age: 64 Year
  Sex: Male

DRUGS (4)
  1. NEVIRAPINE [Suspect]
     Indication: HIV INFECTION
     Dates: start: 20020801
  2. DIDANOSINE [Suspect]
     Indication: HIV INFECTION
     Dates: start: 20020801
  3. EFAVIRENZ [Suspect]
     Indication: HIV INFECTION
     Dates: start: 20020801
  4. LAMIVUDINE [Suspect]
     Indication: HIV INFECTION
     Dates: start: 20020801

REACTIONS (2)
  - CEREBROVASCULAR ACCIDENT [None]
  - DRUG EFFECT DECREASED [None]
